FAERS Safety Report 18247781 (Version 1)
Quarter: 2020Q3

REPORT INFORMATION
  Report Type: Spontaneous
  Country: US (occurrence: US)
  Receive Date: 20200909
  Receipt Date: 20200909
  Transmission Date: 20201103
  Serious: No
  Sender: FDA-Public Use
  Company Number: US-NEPHRON STERILE COMPOUNDING CENTER-2089540

PATIENT
  Age: 24 Year
  Sex: Female
  Weight: 86.36 kg

DRUGS (6)
  1. BUPIVACAINE. [Concomitant]
     Active Substance: BUPIVACAINE
     Route: 039
     Dates: start: 20200822, end: 20200822
  2. CEFAZOLIN SODIUM. [Concomitant]
     Active Substance: CEFAZOLIN SODIUM
     Route: 040
  3. DECADRON [Concomitant]
     Active Substance: DEXAMETHASONE
     Route: 042
  4. ONDANSETRON [Concomitant]
     Active Substance: ONDANSETRON
     Route: 040
  5. MORPHINE SULFATE. [Suspect]
     Active Substance: MORPHINE SULFATE
     Indication: CAESAREAN SECTION
     Route: 039
     Dates: start: 20200822, end: 20200822
  6. EPHEDRINE. [Concomitant]
     Active Substance: EPHEDRINE
     Route: 042

REACTIONS (1)
  - Sedation complication [Recovered/Resolved]

NARRATIVE: CASE EVENT DATE: 20200822
